FAERS Safety Report 4709578-1 (Version None)
Quarter: 2005Q3

REPORT INFORMATION
  Report Type: 
  Country: None (occurrence: None)
  Receive Date: 20050706
  Receipt Date: 20050706
  Transmission Date: 20060218
  Serious: Yes (Life-Threatening, Hospitalization, Disabling)
  Sender: FDA-Public Use
  Company Number: None

PATIENT
  Age: 51 Year
  Sex: Male
  Weight: 79.3795 kg

DRUGS (1)
  1. AUGMENTIN XR [Suspect]
     Indication: CELLULITIS
     Dosage: 2 TABLES    2 X PER DAY   ORAL
     Route: 048
     Dates: start: 20050307, end: 20050404

REACTIONS (14)
  - ANAEMIA [None]
  - ASTHENIA [None]
  - DIARRHOEA [None]
  - DRUG TOXICITY [None]
  - HEPATIC STEATOSIS [None]
  - HEPATITIS ACUTE [None]
  - HEPATITIS CHOLESTATIC [None]
  - HEPATITIS VIRAL [None]
  - IMPAIRED WORK ABILITY [None]
  - METABOLIC DISORDER [None]
  - MUSCLE ATROPHY [None]
  - OBSTRUCTION [None]
  - PANCREATIC ENLARGEMENT [None]
  - WEIGHT DECREASED [None]
